FAERS Safety Report 21809758 (Version 1)
Quarter: 2023Q1

REPORT INFORMATION
  Report Type: Spontaneous
  Country: CN (occurrence: None)
  Receive Date: 20230103
  Receipt Date: 20230103
  Transmission Date: 20230418
  Serious: Yes (Other)
  Sender: FDA-Public Use
  Company Number: CN-ACS-20220213

PATIENT
  Age: 72 Year
  Sex: Female

DRUGS (3)
  1. CEFUROXIME [Suspect]
     Active Substance: CEFUROXIME
     Indication: Prophylaxis
     Dosage: ()
     Route: 031
  2. SODIUM CHLORIDE [Concomitant]
     Active Substance: SODIUM CHLORIDE
  3. TRIAMCINOLONE ACETONIDE [Concomitant]
     Active Substance: TRIAMCINOLONE ACETONIDE
     Dosage: ()
     Route: 031

REACTIONS (3)
  - Macular oedema [Recovered/Resolved]
  - Retinal detachment [Recovered/Resolved]
  - Off label use [Unknown]
